FAERS Safety Report 6232855-2 (Version None)
Quarter: 2009Q2

REPORT INFORMATION
  Report Type: 
  Country: None (occurrence: None)
  Receive Date: 20090617
  Receipt Date: 20081103
  Transmission Date: 20091009
  Serious: No
  Sender: FDA-Public Use
  Company Number: US-ASTRAZENECA-2008UW24592

PATIENT
  Age: 74 Year
  Sex: Female

DRUGS (5)
  1. FASLODEX [Suspect]
     Dosage: UNKNOWN
     Route: 030
     Dates: start: 20080501
  2. RITUXAN [Concomitant]
  3. LIPITOR [Concomitant]
  4. ASPIRIN [Concomitant]
  5. LEVOXYL [Concomitant]

REACTIONS (1)
  - TUMOUR MARKER INCREASED [None]
